FAERS Safety Report 7688294-0 (Version None)
Quarter: 2011Q3

REPORT INFORMATION
  Report Type: 
  Country: None (occurrence: None)
  Receive Date: 20110817
  Receipt Date: 20110222
  Transmission Date: 20111222
  Serious: No
  Sender: FDA-Public Use
  Company Number: US-KINGPHARMUSA00001-K201100209

PATIENT
  Age: 60 Year
  Sex: Female
  Weight: 61.224 kg

DRUGS (3)
  1. ASCORBIC ACID [Suspect]
     Indication: NASOPHARYNGITIS
     Dosage: UNK
     Route: 048
  2. CYTOMEL [Suspect]
     Dosage: 150 MCG, QD
     Route: 048
     Dates: start: 20030101
  3. VITAMIN TAB [Concomitant]
     Dosage: UNK

REACTIONS (1)
  - DYSGEUSIA [None]
